FAERS Safety Report 24244589 (Version 1)
Quarter: 2024Q3

REPORT INFORMATION
  Report Type: Spontaneous
  Country: NZ (occurrence: NZ)
  Receive Date: 20240823
  Receipt Date: 20240823
  Transmission Date: 20241017
  Serious: Yes (Other)
  Sender: MYLAN
  Company Number: NZ-MYLANLABS-2024M1014561

PATIENT
  Age: 25 Year
  Sex: Male

DRUGS (3)
  1. CLOZARIL [Suspect]
     Active Substance: CLOZAPINE
     Indication: Schizophrenia
     Dosage: 350 MILLIGRAM
     Route: 048
     Dates: start: 20231228
  2. CLOZARIL [Suspect]
     Active Substance: CLOZAPINE
     Dosage: UNK
     Route: 065
     Dates: start: 20230123, end: 20240402
  3. OLANZAPINE [Concomitant]
     Active Substance: OLANZAPINE
     Dosage: UNK
     Route: 065

REACTIONS (9)
  - C-reactive protein increased [Unknown]
  - Troponin increased [Unknown]
  - C-reactive protein abnormal [Unknown]
  - Red cell distribution width abnormal [Not Recovered/Not Resolved]
  - Troponin abnormal [Recovering/Resolving]
  - Immature granulocyte count [Unknown]
  - Neutrophil count abnormal [Unknown]
  - White blood cell disorder [Unknown]
  - Therapy cessation [Unknown]

NARRATIVE: CASE EVENT DATE: 20240312
